FAERS Safety Report 4373280-9 (Version None)
Quarter: 2004Q2

REPORT INFORMATION
  Report Type: 
  Country: None (occurrence: None)
  Receive Date: 20040608
  Receipt Date: 20040602
  Transmission Date: 20050107
  Serious: Yes (Other)
  Sender: FDA-Public Use
  Company Number: FR-GLAXOSMITHKLINE-B0334968B

PATIENT

DRUGS (1)
  1. ZYBAN [Suspect]
     Indication: EX-SMOKER
     Dosage: 150MG SEE DOSAGE TEXT
     Dates: start: 20030601, end: 20030701

REACTIONS (4)
  - ABORTION INDUCED [None]
  - DRUG EXPOSURE DURING PREGNANCY [None]
  - PREGNANCY [None]
  - TRISOMY 21 [None]
